FAERS Safety Report 7272910-1 (Version None)
Quarter: 2011Q1

REPORT INFORMATION
  Report Type: 
  Country: None (occurrence: None)
  Receive Date: 20110203
  Receipt Date: 20110124
  Transmission Date: 20110831
  Serious: Yes (Hospitalization, Other)
  Sender: FDA-Public Use
  Company Number: US-MYLANLABS-2011S1000242

PATIENT
  Sex: Female

DRUGS (2)
  1. BUPROPION HCL [Suspect]
     Indication: ANXIETY
     Dates: start: 20090101
  2. BUPROPION HCL [Suspect]
     Dates: end: 20100101

REACTIONS (10)
  - CONFUSIONAL STATE [None]
  - ANGER [None]
  - BALANCE DISORDER [None]
  - OPISTHOTONUS [None]
  - ABASIA [None]
  - INCOHERENT [None]
  - CRYING [None]
  - COGNITIVE DISORDER [None]
  - CONVULSION [None]
  - SYNCOPE [None]
